FAERS Safety Report 13656332 (Version 6)
Quarter: 2017Q4

REPORT INFORMATION
  Report Type: Spontaneous
  Country: CH (occurrence: CH)
  Receive Date: 20170615
  Receipt Date: 20171004
  Transmission Date: 20180320
  Serious: Yes (Hospitalization, Other)
  Sender: FDA-Public Use
  Company Number: CH-TEVA-778088ISR

PATIENT
  Sex: Male

DRUGS (5)
  1. GABAPENTIN MEPHA 400 [Suspect]
     Active Substance: GABAPENTIN
     Indication: NEURALGIA
     Route: 065
     Dates: start: 201608, end: 20170420
  2. OXYCONTIN [Concomitant]
     Active Substance: OXYCODONE HYDROCHLORIDE
     Indication: PAIN
     Dosage: 120 MILLIGRAM DAILY;
     Route: 065
  3. SPASMO-URGENIN NEO [Concomitant]
     Active Substance: TROSPIUM
     Indication: BLADDER DISORDER
     Route: 065
  4. URO-VAXOM [Concomitant]
     Indication: BLADDER DISORDER
     Route: 065
  5. IMOVANE [Concomitant]
     Active Substance: ZOPICLONE
     Indication: SLEEP DISORDER
     Route: 065

REACTIONS (14)
  - Aggression [Not Recovered/Not Resolved]
  - Muscle spasms [Not Recovered/Not Resolved]
  - Insomnia [Recovering/Resolving]
  - Enterostomy [Not Recovered/Not Resolved]
  - Anxiety [Recovering/Resolving]
  - Hostility [Recovering/Resolving]
  - Infection [Recovering/Resolving]
  - Confusional state [Recovering/Resolving]
  - Osteomyelitis [Unknown]
  - Decubitus ulcer [Recovering/Resolving]
  - Amnesia [Recovering/Resolving]
  - Decubitus ulcer [Recovering/Resolving]
  - Infected skin ulcer [Unknown]
  - Nervousness [Recovering/Resolving]

NARRATIVE: CASE EVENT DATE: 2016
